FAERS Safety Report 25876694 (Version 1)
Quarter: 2025Q4

REPORT INFORMATION
  Report Type: Spontaneous
  Country: RS (occurrence: RS)
  Receive Date: 20251003
  Receipt Date: 20251003
  Transmission Date: 20260118
  Serious: Yes (Other)
  Sender: VIIV
  Company Number: RS-VIIV HEALTHCARE-RS2025EME123045

PATIENT
  Age: 38 Year
  Sex: Male

DRUGS (1)
  1. DOVATO [Suspect]
     Active Substance: DOLUTEGRAVIR SODIUM\LAMIVUDINE
     Indication: HIV infection
     Dosage: UNK

REACTIONS (3)
  - Pneumococcal infection [Unknown]
  - Immunodeficiency [Unknown]
  - Inflammation [Unknown]
